FAERS Safety Report 8846099 (Version 1)
Quarter: 2012Q4

REPORT INFORMATION
  Report Type: 
  Country: SG (occurrence: SG)
  Receive Date: 20121017
  Receipt Date: 20121017
  Transmission Date: 20130627
  Serious: Yes (Other)
  Sender: FDA-Public Use
  Company Number: PHHY2012SG089834

PATIENT
  Age: 89 Year
  Sex: Female

DRUGS (1)
  1. ALENDRONIC ACID [Suspect]
     Indication: OSTEOPOROSIS

REACTIONS (10)
  - Femur fracture [Unknown]
  - Oedema peripheral [Unknown]
  - Weight bearing difficulty [Unknown]
  - Tenderness [Unknown]
  - Pain in extremity [Unknown]
  - Musculoskeletal discomfort [Unknown]
  - Fracture nonunion [Unknown]
  - Osteosclerosis [Unknown]
  - Fall [Unknown]
  - Vitamin D decreased [Unknown]
